FAERS Safety Report 22203174 (Version 1)
Quarter: 2023Q2

REPORT INFORMATION
  Report Type: Report from Study
  Country: US (occurrence: US)
  Receive Date: 20230412
  Receipt Date: 20230412
  Transmission Date: 20230721
  Serious: Yes (Other)
  Sender: FDA-Public Use
  Company Number: US-ABBVIE-4723237

PATIENT
  Age: 48 Year
  Sex: Male

DRUGS (1)
  1. HUMIRA [Suspect]
     Active Substance: ADALIMUMAB
     Indication: Crohn^s disease
     Route: 058
     Dates: start: 20180326

REACTIONS (6)
  - Dermal cyst [Unknown]
  - Adverse drug reaction [Unknown]
  - Dizziness [Unknown]
  - Headache [Unknown]
  - Pain of skin [Unknown]
  - Vomiting [Unknown]

NARRATIVE: CASE EVENT DATE: 20230330
